FAERS Safety Report 7997077-3 (Version None)
Quarter: 2011Q4

REPORT INFORMATION
  Report Type: 
  Country: None (occurrence: None)
  Receive Date: 20111221
  Receipt Date: 20111212
  Transmission Date: 20120403
  Serious: Yes (Hospitalization)
  Sender: FDA-Public Use
  Company Number: US-BAYER-2011-065146

PATIENT
  Age: 37 Year
  Sex: Female
  Weight: 108.39 kg

DRUGS (11)
  1. VITAMIN D [Concomitant]
  2. DOXEPIN [Concomitant]
     Indication: DEPRESSION
     Dosage: UNK
     Dates: start: 20081201, end: 20090401
  3. YAZ [Suspect]
     Indication: CONTRACEPTION
     Dosage: UNK
     Route: 048
     Dates: start: 20071101, end: 20090706
  4. FUROSEMIDE [Concomitant]
     Indication: POLYURIA
     Dosage: 20 MG, UNK
     Dates: start: 20090401
  5. ZANTAC [Concomitant]
  6. SINGULAIR [Concomitant]
     Dosage: UNK
     Dates: start: 20081201, end: 20090501
  7. POTASSIUM CHLORIDE [Concomitant]
     Dosage: 10 MEQ, UNK
     Dates: start: 20090501, end: 20090901
  8. VISTARIL [Concomitant]
  9. ALLEGRA [Concomitant]
     Indication: MULTIPLE ALLERGIES
     Dosage: UNK
     Dates: start: 20080901, end: 20090401
  10. LASIX [Concomitant]
  11. HYDROXYZINE [Concomitant]
     Indication: ANXIETY
     Dosage: 25 MG, UNK
     Dates: start: 20090401

REACTIONS (1)
  - PULMONARY EMBOLISM [None]
